FAERS Safety Report 10025334 (Version 3)
Quarter: 2014Q2

REPORT INFORMATION
  Report Type: Spontaneous
  Country: US (occurrence: US)
  Receive Date: 20140320
  Receipt Date: 20140527
  Transmission Date: 20141212
  Serious: Yes (Hospitalization, Other)
  Sender: FDA-Public Use
  Company Number: US-BAYER-2014-041910

PATIENT
  Age: 35 Year
  Sex: Female

DRUGS (8)
  1. YASMIN [Suspect]
     Dosage: UNK
     Dates: start: 2002
  2. YAZ [Suspect]
     Dosage: UNK
     Dates: start: 2002
  3. OXYBUTYNIN [Concomitant]
  4. LEVOTHROID [Concomitant]
  5. LASIX [Concomitant]
  6. ALBUTEROL INHALER [Concomitant]
  7. VICODIN [Concomitant]
  8. MORPHINE [Concomitant]

REACTIONS (6)
  - Pulmonary embolism [Recovered/Resolved]
  - Cholecystitis chronic [None]
  - Injury [None]
  - Pain [None]
  - Fear of disease [None]
  - Pain [None]
